FAERS Safety Report 8394663-6 (Version None)
Quarter: 2012Q2

REPORT INFORMATION
  Report Type: 
  Country: None (occurrence: None)
  Receive Date: 20120530
  Receipt Date: 20120521
  Transmission Date: 20120825
  Serious: Yes (Hospitalization)
  Sender: FDA-Public Use
  Company Number: FR-PFIZER INC-2012119339

PATIENT
  Age: 72 Year
  Sex: Female

DRUGS (8)
  1. BENDAMUSTINE [Suspect]
     Indication: LIGHT CHAIN DISEASE
     Dosage: UNK
     Dates: start: 20120307, end: 20120307
  2. VALACYCLOVIR HYDROCHLORIDE [Concomitant]
     Dosage: UNK
  3. POTASSIUM CHLORIDE [Concomitant]
     Dosage: UNK
  4. HYDROCORTISONE [Concomitant]
     Dosage: UNK
  5. CLONAZEPAM [Concomitant]
     Dosage: UNK
  6. ATARAX [Concomitant]
     Dosage: UNK
  7. PANTOPRAZOLE SODIUM [Suspect]
     Dosage: UNK
     Dates: start: 20120321, end: 20120404
  8. DURAGESIC-100 [Concomitant]
     Dosage: UNK

REACTIONS (1)
  - PANCYTOPENIA [None]
